FAERS Safety Report 17764686 (Version 2)
Quarter: 2020Q4

REPORT INFORMATION
  Report Type: Spontaneous
  Country: CH (occurrence: CZ)
  Receive Date: 20200511
  Receipt Date: 20201019
  Transmission Date: 20210113
  Serious: Yes (Death, Other)
  Sender: FDA-Public Use
  Company Number: CZ-ASTELLAS-2020US015942

PATIENT
  Age: 48 Year
  Sex: Male

DRUGS (1)
  1. CRESEMBA [Suspect]
     Active Substance: ISAVUCONAZONIUM SULFATE
     Indication: PULMONARY MUCORMYCOSIS
     Dosage: UNK UNK, UNKNOWN FREQ.
     Route: 065
     Dates: start: 201908

REACTIONS (1)
  - Acute lymphocytic leukaemia recurrent [Fatal]

NARRATIVE: CASE EVENT DATE: 202001
